FAERS Safety Report 6831051-5 (Version None)
Quarter: 2010Q2

REPORT INFORMATION
  Report Type: 
  Country: None (occurrence: None)
  Receive Date: 20100520
  Receipt Date: 20090924
  Transmission Date: 20101027
  Serious: Yes (Other)
  Sender: FDA-Public Use
  Company Number: 2009210282

PATIENT
  Age: 51 Year
  Sex: Female

DRUGS (10)
  1. PROVERA [Suspect]
     Indication: HORMONE REPLACEMENT THERAPY
     Dosage: 2.5 MG, ORAL ; 5 MG, ORAL ; 10 MG, ORAL
     Route: 048
     Dates: start: 19941201, end: 19950801
  2. PROVERA [Suspect]
     Indication: HORMONE REPLACEMENT THERAPY
     Dosage: 2.5 MG, ORAL ; 5 MG, ORAL ; 10 MG, ORAL
     Route: 048
     Dates: start: 19950801, end: 19960201
  3. PROVERA [Suspect]
     Indication: HORMONE REPLACEMENT THERAPY
     Dosage: 2.5 MG, ORAL ; 5 MG, ORAL ; 10 MG, ORAL
     Route: 048
     Dates: start: 19960201, end: 20010101
  4. PREMARIN [Suspect]
     Indication: HORMONE REPLACEMENT THERAPY
     Dosage: 0.625 MG ; 0.9 MG
     Dates: start: 19941201, end: 19960901
  5. PREMARIN [Suspect]
     Indication: HORMONE REPLACEMENT THERAPY
     Dosage: 0.625 MG ; 0.9 MG
     Dates: start: 19960901, end: 19970701
  6. ALORA [Suspect]
     Indication: HORMONE REPLACEMENT THERAPY
     Dosage: 0.075 MG
     Dates: start: 19970701, end: 19970901
  7. CLIMARA [Suspect]
     Indication: HORMONE REPLACEMENT THERAPY
     Dosage: 0.5 MG
     Dates: start: 19970901, end: 20010101
  8. VIVELLE-DOT [Suspect]
     Indication: HORMONE REPLACEMENT THERAPY
     Dosage: 0.5 MG
     Dates: start: 20010101, end: 20021201
  9. SYNTHROID [Concomitant]
  10. PAXIL [Concomitant]

REACTIONS (1)
  - BREAST CANCER FEMALE [None]
